FAERS Safety Report 23788992 (Version 3)
Quarter: 2024Q2

REPORT INFORMATION
  Report Type: Report from Study
  Country: US (occurrence: US)
  Receive Date: 20240426
  Receipt Date: 20240503
  Transmission Date: 20240716
  Serious: Yes (Hospitalization)
  Sender: FDA-Public Use
  Company Number: US-Stemline Therapeutics, Inc.-2024ST002463

PATIENT
  Age: 77 Year
  Sex: Female

DRUGS (1)
  1. ORSERDU [Suspect]
     Active Substance: ELACESTRANT
     Indication: Product used for unknown indication
     Dosage: 86 MG, 3 TABLETS, ONCE DAILY
     Route: 048
     Dates: start: 20240409, end: 20240414

REACTIONS (2)
  - Pleural effusion [Recovering/Resolving]
  - Dyspnoea [Recovering/Resolving]
